FAERS Safety Report 19594726 (Version 2)
Quarter: 2021Q3

REPORT INFORMATION
  Report Type: Report from Study
  Country: US (occurrence: US)
  Receive Date: 20210722
  Receipt Date: 20210727
  Transmission Date: 20211014
  Serious: Yes (Other)
  Sender: FDA-Public Use
  Company Number: US-GILEAD-2021-0541465

PATIENT
  Age: 73 Year
  Sex: Male
  Weight: 79.82 kg

DRUGS (12)
  1. AMBRISENTAN [Suspect]
     Active Substance: AMBRISENTAN
     Indication: PULMONARY ARTERIAL HYPERTENSION
     Dosage: 10 MG
     Route: 065
  2. VELETRI [Concomitant]
     Active Substance: EPOPROSTENOL
  3. FERROUS SULFATE. [Concomitant]
     Active Substance: FERROUS SULFATE
  4. AZELASTINE. [Concomitant]
     Active Substance: AZELASTINE HYDROCHLORIDE
  5. CYCLOBENZAPRINE. [Concomitant]
     Active Substance: CYCLOBENZAPRINE
  6. NAPROXEN. [Concomitant]
     Active Substance: NAPROXEN
  7. ASPIRIN [ACETYLSALICYLIC ACID] [Concomitant]
     Active Substance: ASPIRIN
  8. UPTRAVI [Concomitant]
     Active Substance: SELEXIPAG
  9. SILDENAFIL. [Concomitant]
     Active Substance: SILDENAFIL
  10. AMOXICILLIN. [Concomitant]
     Active Substance: AMOXICILLIN
  11. LEVOTHYROXINE. [Concomitant]
     Active Substance: LEVOTHYROXINE
  12. SIMVASTATIN. [Concomitant]
     Active Substance: SIMVASTATIN

REACTIONS (5)
  - Product use issue [Recovered/Resolved]
  - Loss of consciousness [Recovered/Resolved]
  - Impaired quality of life [Unknown]
  - Dyspnoea [Recovered/Resolved]
  - Product dose omission issue [Recovered/Resolved]
